FAERS Safety Report 15092630 (Version 1)
Quarter: 2018Q2

REPORT INFORMATION
  Report Type: Spontaneous
  Country: NL (occurrence: NL)
  Receive Date: 20180629
  Receipt Date: 20180629
  Transmission Date: 20180711
  Serious: Yes (Death, Hospitalization, Other)
  Sender: FDA-Public Use
  Company Number: NL-PFIZER INC-2018263203

PATIENT
  Age: 63 Year
  Sex: Male

DRUGS (8)
  1. DEXAMETHASON /00016001/ [Concomitant]
     Active Substance: DEXAMETHASONE
  2. ACENOCOUMAROL [Concomitant]
     Active Substance: ACENOCOUMAROL
  3. OXALIPLATINE PFIZER [Suspect]
     Active Substance: OXALIPLATIN
     Indication: COLON CANCER
     Dosage: NOT RETRIEVABLE
     Route: 042
     Dates: start: 2017, end: 2017
  4. PANTOZOL [Concomitant]
     Active Substance: PANTOPRAZOLE SODIUM
  5. 5 FU [Concomitant]
     Active Substance: FLUOROURACIL
  6. ENALAPRIL [Concomitant]
     Active Substance: ENALAPRIL
  7. FOLIC ACID. [Concomitant]
     Active Substance: FOLIC ACID
  8. ALLOPURINOL. [Concomitant]
     Active Substance: ALLOPURINOL

REACTIONS (3)
  - Pulmonary embolism [Unknown]
  - Pneumocystis jirovecii pneumonia [Fatal]
  - Neuropathy peripheral [Unknown]

NARRATIVE: CASE EVENT DATE: 2017
